FAERS Safety Report 5699170-7 (Version None)
Quarter: 2008Q2

REPORT INFORMATION
  Report Type: 
  Country: None (occurrence: None)
  Receive Date: 20080409
  Receipt Date: 20080409
  Transmission Date: 20081010
  Serious: No
  Sender: FDA-Public Use
  Company Number: None

PATIENT
  Sex: Male

DRUGS (1)
  1. HEPARIN [Suspect]

REACTIONS (2)
  - ILL-DEFINED DISORDER [None]
  - THERAPEUTIC PRODUCT CONTAMINATION [None]
